FAERS Safety Report 16338132 (Version 1)
Quarter: 2020Q3

REPORT INFORMATION
  Report Type: Report from Study
  Country: US (occurrence: US)
  Receive Date: 20190521
  Receipt Date: 20190521
  Transmission Date: 20201105
  Serious: Yes (Hospitalization)
  Sender: FDA-Public Use
  Company Number: US-JNJFOC-20190510910

PATIENT
  Age: 27 Year
  Sex: Female
  Weight: 140.62 kg

DRUGS (9)
  1. ZOLOFT [Concomitant]
     Active Substance: SERTRALINE HYDROCHLORIDE
     Indication: ANXIETY
     Route: 048
     Dates: start: 20190502, end: 20190504
  2. GUSELKUMAB [Suspect]
     Active Substance: GUSELKUMAB
     Indication: HIDRADENITIS
     Route: 058
     Dates: start: 20190117, end: 20190410
  3. GUSELKUMAB [Suspect]
     Active Substance: GUSELKUMAB
     Indication: HIDRADENITIS
     Route: 058
     Dates: start: 20181025, end: 20181220
  4. SYNTHROID [Concomitant]
     Active Substance: LEVOTHYROXINE SODIUM
     Indication: HYPOTHYROIDISM
     Route: 048
     Dates: start: 20190411
  5. EXCEDRIN MIGRAINE [Concomitant]
     Active Substance: ACETAMINOPHEN\ASPIRIN\CAFFEINE
     Indication: MIGRAINE
     Route: 048
     Dates: start: 2005
  6. ZOLOFT [Concomitant]
     Active Substance: SERTRALINE HYDROCHLORIDE
     Indication: ANXIETY
     Route: 048
     Dates: start: 20190505
  7. GUSELKUMAB [Suspect]
     Active Substance: GUSELKUMAB
     Indication: HIDRADENITIS
     Route: 058
     Dates: start: 20181025, end: 20181220
  8. GUSELKUMAB [Suspect]
     Active Substance: GUSELKUMAB
     Indication: HIDRADENITIS
     Route: 058
     Dates: start: 20190117, end: 20190410
  9. SYNTHROID [Concomitant]
     Active Substance: LEVOTHYROXINE SODIUM
     Indication: HYPOTHYROIDISM
     Route: 048
     Dates: start: 20180801, end: 20181004

REACTIONS (1)
  - Pneumonia [Recovering/Resolving]

NARRATIVE: CASE EVENT DATE: 20190411
